FAERS Safety Report 8991388 (Version 3)
Quarter: 2013Q1

REPORT INFORMATION
  Report Type: Spontaneous
  Country: US (occurrence: US)
  Receive Date: 20121229
  Receipt Date: 20130125
  Transmission Date: 20140127
  Serious: Yes (Death)
  Sender: FDA-Public Use
  Company Number: US-009507513-1212USA010802

PATIENT
  Age: 58 Year
  Sex: Male
  Weight: 78.23 kg

DRUGS (7)
  1. VICTRELIS [Suspect]
     Indication: CHRONIC HEPATITIS C
     Dosage: 800 MG, TID
     Route: 048
     Dates: start: 20121019, end: 20121224
  2. PEGASYS [Suspect]
     Indication: CHRONIC HEPATITIS C
     Dosage: 180 MICROGRAM, QW
     Route: 058
     Dates: start: 20120921, end: 20121224
  3. RIBAPAK [Suspect]
     Indication: CHRONIC HEPATITIS C
     Dosage: 600 MG, BID
     Route: 048
     Dates: start: 20120921, end: 20121224
  4. METOPROLOL [Concomitant]
     Dosage: UNK
     Route: 048
  5. HYDROCHLOROTHIAZIDE (+) TRIAMTERENE [Concomitant]
     Dosage: UNK
     Route: 048
  6. ZOLOFT [Concomitant]
  7. AMILORIDE [Concomitant]

REACTIONS (1)
  - Death [Fatal]
